FAERS Safety Report 20326078 (Version 1)
Quarter: 2022Q1

REPORT INFORMATION
  Report Type: Spontaneous
  Country: US (occurrence: US)
  Receive Date: 20220112
  Receipt Date: 20220112
  Transmission Date: 20220424
  Serious: Yes (Hospitalization, Other)
  Sender: FDA-Public Use
  Company Number: US-AUROBINDO-AUR-APL-2021-054272

PATIENT
  Sex: Female
  Weight: 2.6 kg

DRUGS (6)
  1. ALBUTEROL SULFATE [Suspect]
     Active Substance: ALBUTEROL SULFATE
     Indication: Asthma
     Dosage: UNK
     Route: 064
  2. RANITIDINE [Suspect]
     Active Substance: RANITIDINE
     Indication: Gastrointestinal disorder
     Dosage: UNK
     Route: 064
  3. SUMATRIPTAN [Suspect]
     Active Substance: SUMATRIPTAN
     Indication: Migraine
     Dosage: UNK
     Route: 064
  4. TRULANCE [Suspect]
     Active Substance: PLECANATIDE
     Indication: Constipation
     Dosage: UNK
     Route: 064
  5. PROZAC [Suspect]
     Active Substance: FLUOXETINE HYDROCHLORIDE
     Indication: Depression
     Dosage: UNK
     Route: 064
  6. WELLBUTRIN XL [Suspect]
     Active Substance: BUPROPION HYDROCHLORIDE
     Indication: Depression
     Dosage: UNK
     Route: 064

REACTIONS (3)
  - Seizure [Unknown]
  - Sepsis [Unknown]
  - Foetal exposure during pregnancy [Unknown]

NARRATIVE: CASE EVENT DATE: 20201203
